FAERS Safety Report 13693453 (Version 1)
Quarter: 2017Q2

REPORT INFORMATION
  Report Type: Spontaneous
  Country: US (occurrence: US)
  Receive Date: 20170626
  Receipt Date: 20170626
  Transmission Date: 20170830
  Serious: Yes (Disabling)
  Sender: FDA-Public Use
  Company Number: None

PATIENT
  Age: 71 Year
  Sex: Male
  Weight: 72 kg

DRUGS (7)
  1. ADVIL [Concomitant]
     Active Substance: IBUPROFEN
  2. CLONAZEPAM. [Suspect]
     Active Substance: CLONAZEPAM
     Indication: PANIC REACTION
     Dosage: ?          QUANTITY:2 TABLET(S);?
     Route: 048
     Dates: start: 19931214, end: 20151214
  3. CLONAZEPAM. [Suspect]
     Active Substance: CLONAZEPAM
     Indication: ANXIETY
     Dosage: ?          QUANTITY:2 TABLET(S);?
     Route: 048
     Dates: start: 19931214, end: 20151214
  4. ALEVE [Concomitant]
     Active Substance: NAPROXEN SODIUM
  5. STATIN [Concomitant]
     Active Substance: UNSPECIFIED INGREDIENT
  6. ARMOUR THYROID [Concomitant]
     Active Substance: THYROID, PORCINE
  7. PROZAC [Concomitant]
     Active Substance: FLUOXETINE HYDROCHLORIDE

REACTIONS (14)
  - Panic attack [None]
  - Hyperacusis [None]
  - Withdrawal syndrome [None]
  - Insomnia [None]
  - Anxiety [None]
  - Anhedonia [None]
  - Agitation [None]
  - Product quality issue [None]
  - Fatigue [None]
  - Depersonalisation/derealisation disorder [None]
  - Memory impairment [None]
  - Suicidal ideation [None]
  - Myalgia [None]
  - Feeling abnormal [None]

NARRATIVE: CASE EVENT DATE: 20151214
